FAERS Safety Report 13404334 (Version 1)
Quarter: 2017Q2

REPORT INFORMATION
  Report Type: Spontaneous
  Country: BR (occurrence: BR)
  Receive Date: 20170405
  Receipt Date: 20170405
  Transmission Date: 20170830
  Serious: Yes (Other)
  Sender: FDA-Public Use
  Company Number: BR-AMGEN-BRASP2017047494

PATIENT
  Sex: Female

DRUGS (1)
  1. PROLIA [Suspect]
     Active Substance: DENOSUMAB
     Indication: OSTEOPENIA
     Dosage: 60 MG, UNK
     Route: 065

REACTIONS (7)
  - Eating disorder [Unknown]
  - Blood calcium abnormal [Unknown]
  - Off label use [Unknown]
  - Drug dose omission [Unknown]
  - Metabolic surgery [Unknown]
  - Wrong technique in product usage process [Unknown]
  - Malabsorption [Unknown]
